FAERS Safety Report 16507010 (Version 1)
Quarter: 2019Q3

REPORT INFORMATION
  Report Type: Spontaneous
  Country: US (occurrence: US)
  Receive Date: 20190520
  Receipt Date: 20190520
  Transmission Date: 20191004
  Serious: Yes (Other)
  Sender: FDA-Public Use
  Company Number: None

PATIENT
  Age: 62 Year
  Sex: Female
  Weight: 90.72 kg

DRUGS (5)
  1. SMZ/TMP DS [Suspect]
     Active Substance: SULFAMETHOXAZOLE\TRIMETHOPRIM
     Indication: URINARY TRACT INFECTION
     Dosage: ?          QUANTITY:1 DF DOSAGE FORM;?
     Route: 048
     Dates: start: 2017, end: 20190205
  2. DETROL LA [Concomitant]
     Active Substance: TOLTERODINE TARTRATE
  3. EXCEDRIN [Concomitant]
     Active Substance: ACETAMINOPHEN\ASPIRIN\CAFFEINE
  4. SUDAFED [Concomitant]
     Active Substance: PSEUDOEPHEDRINE HYDROCHLORIDE
  5. ATENOLOL. [Concomitant]
     Active Substance: ATENOLOL

REACTIONS (3)
  - Scar [None]
  - Urticaria [None]
  - Skin ulcer [None]

NARRATIVE: CASE EVENT DATE: 20190201
